FAERS Safety Report 6756676-7 (Version None)
Quarter: 2010Q2

REPORT INFORMATION
  Report Type: 
  Country: None (occurrence: None)
  Receive Date: 20100604
  Receipt Date: 20100524
  Transmission Date: 20101027
  Serious: No
  Sender: FDA-Public Use
  Company Number: US-ROXANE LABORATORIES, INC.-2010-RO-00551RO

PATIENT
  Age: 65 Year
  Sex: Male

DRUGS (2)
  1. HYDROMORPHONE HCL [Suspect]
     Indication: BACK PAIN
     Route: 048
  2. HYDROMORPHONE HCL [Suspect]
     Indication: NECK PAIN

REACTIONS (1)
  - DRUG INEFFECTIVE [None]
